FAERS Safety Report 5531694-5 (Version None)
Quarter: 2007Q4

REPORT INFORMATION
  Report Type: 
  Country: None (occurrence: None)
  Receive Date: 20071128
  Receipt Date: 20071123
  Transmission Date: 20080405
  Serious: Yes (Other)
  Sender: FDA-Public Use
  Company Number: UKP07000253

PATIENT
  Age: 72 Year
  Sex: Female
  Weight: 63 kg

DRUGS (2)
  1. ACTONEL [Suspect]
     Dosage: 5 MG, ORAL
     Route: 048
     Dates: start: 20041111, end: 20060719
  2. ALENDRONATE SODIUM [Suspect]
     Dosage: 70 MG, ORAL
     Route: 048
     Dates: start: 20070926

REACTIONS (2)
  - VISUAL DISTURBANCE [None]
  - VISUAL FIELD DEFECT [None]
